FAERS Safety Report 4440806-6 (Version None)
Quarter: 2004Q3

REPORT INFORMATION
  Report Type: 
  Country: None (occurrence: None)
  Receive Date: 20040827
  Receipt Date: 20040622
  Transmission Date: 20050211
  Serious: Yes (Hospitalization)
  Sender: FDA-Public Use
  Company Number: 2004042134

PATIENT
  Age: 48 Year
  Sex: Female

DRUGS (2)
  1. LOPID [Suspect]
     Indication: HYPERLIPIDAEMIA
     Dosage: 1200 MG (600 MG, 2 IN 1 D)
  2. METFORMIN HCL [Concomitant]

REACTIONS (7)
  - ABDOMINAL PAIN [None]
  - ALANINE AMINOTRANSFERASE INCREASED [None]
  - ASPARTATE AMINOTRANSFERASE INCREASED [None]
  - BLOOD ALBUMIN DECREASED [None]
  - GAMMA-GLUTAMYLTRANSFERASE INCREASED [None]
  - NAUSEA [None]
  - VOMITING [None]
